FAERS Safety Report 8660575 (Version 3)
Quarter: 2012Q4

REPORT INFORMATION
  Report Type: 
  Country: JP (occurrence: JP)
  Receive Date: 20120711
  Receipt Date: 20120926
  Transmission Date: 20130627
  Serious: Yes (Other)
  Sender: FDA-Public Use
  Company Number: JP-BRISTOL-MYERS SQUIBB COMPANY-16753048

PATIENT
  Age: 60 Year
  Sex: Male

DRUGS (2)
  1. ABILIFY ORAL SOLUTION [Suspect]
     Indication: SCHIZOPHRENIA
     Dosage: 0.1%
Unk to 26Jun2012:12mg
restarted with 6mg
     Route: 048
  2. AKINETON [Concomitant]
     Dosage: 1df= tabs

REACTIONS (1)
  - Ileus [Recovered/Resolved]
